FAERS Safety Report 16891623 (Version 2)
Quarter: 2019Q4

REPORT INFORMATION
  Report Type: Spontaneous
  Country: US (occurrence: US)
  Receive Date: 20191007
  Receipt Date: 20191010
  Transmission Date: 20200122
  Serious: Yes (Hospitalization, Other)
  Sender: FDA-Public Use
  Company Number: US-PFIZER INC-2019420488

PATIENT
  Age: 30 Year
  Sex: Female
  Weight: 67 kg

DRUGS (10)
  1. FENTANYL. [Concomitant]
     Active Substance: FENTANYL
     Indication: ANALGESIC THERAPY
     Dosage: 20 UG, UNK
     Route: 039
  2. FENTANYL. [Concomitant]
     Active Substance: FENTANYL
     Indication: EPIDURAL ANALGESIA
     Dosage: 6 ML, UNK (PER HOUR WITH BOLUS DOSE, WITH A 20 MINUTE)
     Route: 008
  3. EPINEPHRINE/LIDOCAINE HYDROCHLORIDE [Suspect]
     Active Substance: EPINEPHRINE\LIDOCAINE HYDROCHLORIDE
     Indication: EPIDURAL TEST DOSE
     Dosage: 3 ML, UNK A TEST DOSE OF 3 MILLILITERS (ML) LIDOCAINE 1.5% WITH EPINEPHRINE 1:200,000
     Route: 008
  4. ROPIVACAINE. [Concomitant]
     Active Substance: ROPIVACAINE HYDROCHLORIDE
     Indication: EPIDURAL ANALGESIA
     Dosage: 6 ML, UNK
     Route: 008
  5. LIDOCAINE HCL [Suspect]
     Active Substance: LIDOCAINE HYDROCHLORIDE
     Indication: EPIDURAL ANALGESIA
  6. ROPIVACAINE. [Concomitant]
     Active Substance: ROPIVACAINE HYDROCHLORIDE
     Dosage: 3 ML, UNK 3 ML, BOLUS DOSE OF 3 ML WITH A 20 MINUTE LOCKOUT
     Route: 008
  7. FENTANYL. [Concomitant]
     Active Substance: FENTANYL
     Indication: EPIDURAL ANALGESIA
     Dosage: 3 ML, UNK BOLUS DOSE OF 3 ML WITH A 20 MINUTE LOCKOUT
     Route: 008
  8. LIDOCAINE HCL [Suspect]
     Active Substance: LIDOCAINE HYDROCHLORIDE
     Indication: LOCAL ANAESTHESIA
     Dosage: 5 ML, UNK
     Route: 008
  9. ROPIVACAINE. [Concomitant]
     Active Substance: ROPIVACAINE HYDROCHLORIDE
     Indication: EPIDURAL ANALGESIA
     Dosage: 7 ML, UNK BOLUS (0.2%)
     Route: 008
  10. EPINEPHRINE. [Concomitant]
     Active Substance: EPINEPHRINE
     Indication: EPIDURAL ANALGESIA
     Dosage: UNK (1:200,000, TEST DOSE)
     Route: 008

REACTIONS (2)
  - Horner^s syndrome [Recovered/Resolved]
  - Brachial plexus injury [Recovered/Resolved]
